FAERS Safety Report 19974105 (Version 1)
Quarter: 2021Q4

REPORT INFORMATION
  Report Type: Spontaneous
  Country: US (occurrence: US)
  Receive Date: 20211020
  Receipt Date: 20211020
  Transmission Date: 20220303
  Serious: Yes (unspecified)
  Sender: FDA-Public Use
  Company Number: None

PATIENT
  Age: 75 Year
  Sex: Female

DRUGS (7)
  1. PRIVIGEN [Suspect]
     Active Substance: HUMAN IMMUNOGLOBULIN G
     Indication: Hypogammaglobulinaemia
     Route: 042
  2. PRIVIGEN [Suspect]
     Active Substance: HUMAN IMMUNOGLOBULIN G
     Route: 042
  3. Acetaminophen 650 mg PO [Concomitant]
     Dates: start: 20211018, end: 20211018
  4. Diphenhydramine 25 mg PO [Concomitant]
     Dates: start: 20211018, end: 20211018
  5. Diphenhydramine 25 mg IV [Concomitant]
     Dates: start: 20211018, end: 20211018
  6. Famotidine 20 mg IV [Concomitant]
     Dates: start: 20211018, end: 20211018
  7. Methylprednisolone 40 mg IV [Concomitant]
     Dates: start: 20211018, end: 20211018

REACTIONS (3)
  - Back pain [None]
  - Chills [None]
  - Blood pressure increased [None]

NARRATIVE: CASE EVENT DATE: 20211018
